FAERS Safety Report 15722312 (Version 1)
Quarter: 2018Q4

REPORT INFORMATION
  Report Type: Spontaneous
  Country: US (occurrence: US)
  Receive Date: 20181129
  Receipt Date: 20181129
  Transmission Date: 20190205
  Serious: Yes (Hospitalization)
  Sender: FDA-Public Use
  Company Number: None

PATIENT
  Sex: Female
  Weight: 7.26 kg

DRUGS (3)
  1. ZINECARD [Suspect]
     Active Substance: DEXRAZOXANE HYDROCHLORIDE
     Dates: end: 20181101
  2. DOXORUBICIN HYDROCHLORIDE. [Suspect]
     Active Substance: DOXORUBICIN HYDROCHLORIDE
     Dates: end: 20181101
  3. CARBOPLATIN. [Suspect]
     Active Substance: CARBOPLATIN

REACTIONS (11)
  - Pyrexia [None]
  - Enterovirus infection [None]
  - Tachycardia [None]
  - Rhinovirus infection [None]
  - Transfusion [None]
  - Vomiting [None]
  - White blood cell count decreased [None]
  - Neutropenia [None]
  - Haemoglobin decreased [None]
  - Fatigue [None]
  - Platelet count decreased [None]
